FAERS Safety Report 18613489 (Version 1)
Quarter: 2020Q4

REPORT INFORMATION
  Report Type: Spontaneous
  Country: US (occurrence: US)
  Receive Date: 20201214
  Receipt Date: 20201214
  Transmission Date: 20210114
  Serious: No
  Sender: FDA-Public Use
  Company Number: US-NOVOPROD-706326

PATIENT
  Sex: Male

DRUGS (1)
  1. LEVEMIR [Suspect]
     Active Substance: INSULIN DETEMIR
     Indication: TYPE 2 DIABETES MELLITUS
     Dosage: UNK
     Route: 058

REACTIONS (4)
  - Burning sensation [Unknown]
  - Suspected product tampering [Unknown]
  - Dyspepsia [Unknown]
  - Chest pain [Unknown]

NARRATIVE: CASE EVENT DATE: 2019
